FAERS Safety Report 8845395 (Version 1)
Quarter: 2012Q4

REPORT INFORMATION
  Report Type: Spontaneous
  Country: US (occurrence: None)
  Receive Date: 20121015
  Receipt Date: 20121015
  Transmission Date: 20130627
  Serious: Yes (Other)
  Sender: FDA-Public Use
  Company Number: 20120620

PATIENT
  Age: 1 Year
  Sex: Male

DRUGS (2)
  1. VENOFER [Suspect]
     Indication: IRON SUPPLEMENTATION
     Dosage: in 15 ml NS
     Dates: start: 20120702
  2. TPN (TOTAL PARENTERAL NUTRITION) [Concomitant]

REACTIONS (1)
  - Hypoglycaemia [None]
